FAERS Safety Report 10583369 (Version 1)
Quarter: 2014Q4

REPORT INFORMATION
  Report Type: Spontaneous
  Country: US (occurrence: None)
  Receive Date: 20141112
  Receipt Date: 20141112
  Transmission Date: 20150529
  Serious: Yes (Hospitalization)
  Sender: FDA-Public Use
  Company Number: INT_00507_2014

PATIENT
  Age: 35 Year
  Sex: Female

DRUGS (1)
  1. PACLITAXEL. [Suspect]
     Active Substance: PACLITAXEL
     Indication: BREAST MASS
     Dosage: DF

REACTIONS (5)
  - Invasive ductal breast carcinoma [None]
  - Malignant neoplasm progression [None]
  - Caesarean section [None]
  - Oligohydramnios [None]
  - Maternal exposure during pregnancy [None]
